FAERS Safety Report 16105652 (Version 2)
Quarter: 2019Q4

REPORT INFORMATION
  Report Type: Spontaneous
  Country: FR (occurrence: FR)
  Receive Date: 20190322
  Receipt Date: 20191025
  Transmission Date: 20200122
  Serious: Yes (Death)
  Sender: FDA-Public Use
  Company Number: FR-PFIZER INC-2019123573

PATIENT
  Age: 65 Year
  Sex: Female
  Weight: 83 kg

DRUGS (7)
  1. METRONIDAZOLE. [Concomitant]
     Active Substance: METRONIDAZOLE
     Indication: OSTEITIS
     Dosage: 750 MG, 1X/DAY
     Route: 042
     Dates: start: 20190106, end: 20190110
  2. CIPROFLOXACIN. [Concomitant]
     Active Substance: CIPROFLOXACIN
     Indication: OSTEITIS
     Dosage: 500 MG, 1X/DAY
     Route: 042
     Dates: start: 20190106, end: 20190110
  3. MEROPENEM ANHYDROUS [Concomitant]
     Active Substance: MEROPENEM ANHYDROUS
     Indication: OSTEITIS
     Dosage: 3 G, 1X/DAY
     Route: 048
     Dates: start: 20190110
  4. TAZOCILLINE [Suspect]
     Active Substance: PIPERACILLIN SODIUM\TAZOBACTAM SODIUM
     Indication: OSTEITIS
     Dosage: 12 G, 1X/DAY
     Route: 042
     Dates: start: 20181210, end: 20190102
  5. CUBICIN [Concomitant]
     Active Substance: DAPTOMYCIN
     Indication: OSTEITIS
     Dosage: 800 MG, 1X/DAY
     Route: 042
     Dates: start: 20190110
  6. VANCOMYCIN [Suspect]
     Active Substance: VANCOMYCIN
     Indication: OSTEITIS
     Dosage: 1 G, 1X/DAY
     Route: 042
     Dates: start: 20181207, end: 20190110
  7. IZILOX [Concomitant]
     Active Substance: MOXIFLOXACIN HYDROCHLORIDE
     Indication: OSTEITIS
     Dosage: 400 MG, 1X/DAY
     Route: 048
     Dates: start: 20190102, end: 20190106

REACTIONS (2)
  - Cheilitis [Fatal]
  - Drug reaction with eosinophilia and systemic symptoms [Fatal]

NARRATIVE: CASE EVENT DATE: 20190106
